FAERS Safety Report 6835401-5 (Version None)
Quarter: 2010Q3

REPORT INFORMATION
  Report Type: 
  Country: None (occurrence: None)
  Receive Date: 20100713
  Receipt Date: 20100705
  Transmission Date: 20110219
  Serious: Yes (Other)
  Sender: FDA-Public Use
  Company Number: JP-MPIJNJ-2010-02955

PATIENT

DRUGS (11)
  1. VELCADE [Suspect]
     Indication: MULTIPLE MYELOMA
     Dosage: 1.9 MG, UNK
     Route: 042
     Dates: start: 20100416, end: 20100520
  2. DECADRON [Concomitant]
     Indication: MULTIPLE MYELOMA
     Dosage: 24 MG, UNK
     Route: 042
     Dates: start: 20100416, end: 20100520
  3. DECADRON [Concomitant]
     Dosage: 20 MG, UNK
     Route: 048
     Dates: start: 20100417, end: 20100521
  4. BONALON                            /01220301/ [Concomitant]
     Indication: OSTEOPOROSIS PROPHYLAXIS
     Dosage: 35 MG, UNK
     Route: 048
     Dates: start: 20100416
  5. ALTAT [Concomitant]
     Indication: MULTIPLE MYELOMA
     Dosage: 150 MG, UNK
     Route: 048
     Dates: start: 20100416
  6. COTRIM [Concomitant]
     Indication: ANTIFUNGAL PROPHYLAXIS
     Dosage: 1 DF, UNK
     Route: 048
     Dates: start: 20100416
  7. ITRIZOLE [Concomitant]
     Indication: ANTIFUNGAL PROPHYLAXIS
     Dosage: 200 MG, UNK
     Route: 048
     Dates: start: 20100416
  8. LASIX [Concomitant]
     Indication: OEDEMA
     Dosage: 20 MG, UNK
     Route: 048
     Dates: start: 20100416
  9. METHYCOBAL                         /00324901/ [Concomitant]
     Indication: NEUROPATHY PERIPHERAL
     Dosage: 1500 UG, UNK
     Route: 048
     Dates: start: 20100506
  10. TRYPTANOL                          /00002201/ [Concomitant]
     Indication: NEUROPATHY PERIPHERAL
     Dosage: 10 MG, UNK
     Route: 048
     Dates: start: 20100506
  11. DEPAKENE [Concomitant]
     Indication: NEUROPATHY PERIPHERAL
     Dosage: 600 MG, UNK
     Route: 048
     Dates: start: 20100506

REACTIONS (3)
  - CARDIOMEGALY [None]
  - INTERSTITIAL LUNG DISEASE [None]
  - NEUROPATHY PERIPHERAL [None]
